FAERS Safety Report 8448246-X (Version None)
Quarter: 2012Q2

REPORT INFORMATION
  Report Type: 
  Country: None (occurrence: None)
  Receive Date: 20120531
  Receipt Date: 20120525
  Transmission Date: 20120825
  Serious: Yes (Life-Threatening, Hospitalization)
  Sender: FDA-Public Use
  Company Number: 2012032463

PATIENT
  Age: 62 Year
  Sex: Female

DRUGS (2)
  1. GENTAMICIN SULFATE [Suspect]
     Indication: INFECTION
  2. IMMUNE GLOBULIN INTRAVENOUS (HUMAN) [Suspect]
     Indication: PYODERMA GANGRENOSUM
     Dosage: 400 MG/KG QD INTRAVENOUS (NOT OTHERWISE SPECIFIED)
     Route: 042
     Dates: start: 20120503, end: 20120505

REACTIONS (2)
  - OFF LABEL USE [None]
  - RENAL FAILURE ACUTE [None]
